FAERS Safety Report 13344196 (Version 1)
Quarter: 2017Q1

REPORT INFORMATION
  Report Type: Report from Study
  Country: None (occurrence: VE)
  Receive Date: 20170316
  Receipt Date: 20170316
  Transmission Date: 20170428
  Serious: Yes (Death)
  Sender: FDA-Public Use
  Company Number: VE-ABBVIE-17P-178-1906833-00

PATIENT
  Age: 91 Year
  Sex: Male

DRUGS (5)
  1. ZEMPLAR [Suspect]
     Active Substance: PARICALCITOL
     Indication: HYPERTENSION
     Route: 042
     Dates: start: 20161116
  2. LYPITOR [Concomitant]
     Indication: PRODUCT USED FOR UNKNOWN INDICATION
  3. AMLOVAS [Concomitant]
     Indication: PRODUCT USED FOR UNKNOWN INDICATION
  4. ZANTACE [Concomitant]
     Indication: PRODUCT USED FOR UNKNOWN INDICATION
  5. OLMESARTAN [Concomitant]
     Active Substance: OLMESARTAN
     Indication: PRODUCT USED FOR UNKNOWN INDICATION

REACTIONS (1)
  - Cerebrovascular accident [Fatal]

NARRATIVE: CASE EVENT DATE: 20161201
